FAERS Safety Report 8469663 (Version 2)
Quarter: 2013Q2

REPORT INFORMATION
  Report Type: Spontaneous
  Country: US (occurrence: None)
  Receive Date: 20120305
  Receipt Date: 20120831
  Transmission Date: 20140414
  Serious: Yes (Hospitalization)
  Sender: FDA-Public Use
  Company Number: 1000025939

PATIENT
  Age: 69 Year
  Sex: Male

DRUGS (2)
  1. DALIRESP [Suspect]
     Indication: CHRONIC OBSTRUCTIVE PULMONARY DISEASE
     Dates: start: 20110914, end: 20111105
  2. PREDNISONE [Concomitant]

REACTIONS (1)
  - ATRIAL FIBRILLATION [None]
